FAERS Safety Report 17335375 (Version 1)
Quarter: 2020Q1

REPORT INFORMATION
  Report Type: Spontaneous
  Country: US (occurrence: US)
  Receive Date: 20200128
  Receipt Date: 20200128
  Transmission Date: 20200409
  Serious: No
  Sender: FDA-Public Use
  Company Number: US-B.I. PHARMACEUTICALS,INC./RIDGEFIELD-2020-US-003706

PATIENT
  Age: 62 Year
  Sex: Female

DRUGS (2)
  1. BREO ELLIPTA [Concomitant]
     Active Substance: FLUTICASONE FUROATE\VILANTEROL TRIFENATATE
     Indication: ASTHMA
     Route: 065
  2. COMBIVENT [Suspect]
     Active Substance: ALBUTEROL SULFATE\IPRATROPIUM BROMIDE
     Indication: ASTHMA
     Dosage: 2 PUFFS BID FOR 14 DAYS
     Route: 065
     Dates: start: 20190118

REACTIONS (8)
  - Laryngitis [Recovering/Resolving]
  - Pneumonia [Unknown]
  - Off label use [Unknown]
  - Nasopharyngitis [Unknown]
  - Asthma [Recovering/Resolving]
  - Wheezing [Recovering/Resolving]
  - Head discomfort [Recovering/Resolving]
  - Ear congestion [Recovering/Resolving]

NARRATIVE: CASE EVENT DATE: 20190118
